FAERS Safety Report 24146247 (Version 1)
Quarter: 2024Q3

REPORT INFORMATION
  Report Type: Spontaneous
  Country: DZ (occurrence: DZ)
  Receive Date: 20240729
  Receipt Date: 20240729
  Transmission Date: 20241016
  Serious: Yes (Other)
  Sender: BIOVITRUM
  Company Number: DZ-BIOVITRUM-2024-DZ-010191

PATIENT
  Age: 12 Year
  Sex: Male

DRUGS (2)
  1. KINERET [Suspect]
     Active Substance: ANAKINRA
     Indication: Still^s disease
     Dosage: 2 MG/KG/DAY
     Dates: start: 2021, end: 2022
  2. KINERET [Suspect]
     Active Substance: ANAKINRA
     Dosage: 4 MG/KG/DAY

REACTIONS (1)
  - Haemophagocytic lymphohistiocytosis [Recovered/Resolved]
